FAERS Safety Report 8905550 (Version 2)
Quarter: 2012Q4

REPORT INFORMATION
  Report Type: 
  Country: US (occurrence: US)
  Receive Date: 20121113
  Receipt Date: 20121218
  Transmission Date: 20130627
  Serious: Yes (Other)
  Sender: FDA-Public Use
  Company Number: US-PFIZER INC-2012280969

PATIENT
  Age: 57 Year
  Sex: Female
  Weight: 109 kg

DRUGS (4)
  1. LYRICA [Suspect]
     Indication: NEUROPATHY
     Dosage: 150 mg, daily
     Route: 048
     Dates: start: 2010
  2. LYRICA [Suspect]
     Dosage: 200 mg, daily
  3. GABAPENTIN [Suspect]
     Indication: NEUROPATHY
     Dosage: UNK
     Dates: end: 2012
  4. BENICAR [Concomitant]
     Indication: BLOOD PRESSURE HIGH
     Dosage: 40 mg, daily

REACTIONS (7)
  - Stent placement [Unknown]
  - Drug ineffective [Unknown]
  - Paraesthesia [Recovering/Resolving]
  - Feeling cold [Unknown]
  - Dyspnoea [Unknown]
  - Oedema peripheral [Unknown]
  - Pain in extremity [Unknown]
